FAERS Safety Report 14770161 (Version 1)
Quarter: 2018Q2

REPORT INFORMATION
  Report Type: Spontaneous
  Country: VE (occurrence: VE)
  Receive Date: 20180417
  Receipt Date: 20180417
  Transmission Date: 20180711
  Serious: Yes (Other)
  Sender: FDA-Public Use
  Company Number: VE-PFIZER INC-2018150176

PATIENT
  Age: 85 Year
  Sex: Male

DRUGS (15)
  1. VITAMIN C [Concomitant]
     Active Substance: ASCORBIC ACID
     Dosage: 1 DF, DAILY
  2. ZOLOFT [Suspect]
     Active Substance: SERTRALINE HYDROCHLORIDE
     Indication: AFFECTIVE DISORDER
     Dosage: 50 MG, DAILY
  3. COVENTROL [Concomitant]
     Indication: HYPERTENSION
     Dosage: 6.25 MG, 2X/DAY (BEFORE BREAKFAST AND DINNER)
  4. STILNOX [Concomitant]
     Active Substance: ZOLPIDEM TARTRATE
     Dosage: 10 MG, 1X/DAY (BEFORE GOING TO BED)
  5. ESOMEPRAZOLE [Concomitant]
     Active Substance: ESOMEPRAZOLE
     Dosage: 40 MG, 1X/DAY (AT 10 AM)
  6. EPOETIN BETA [Concomitant]
     Active Substance: ERYTHROPOIETIN
     Dosage: 2 DF(AMPOULES), 3 TIMES PER WEEK (MONDAY, WEDNESDAY, FRIDAY) OR EVERY AFTER DIALYSIS
     Route: 058
  7. FOLIC ACID. [Concomitant]
     Active Substance: FOLIC ACID
     Dosage: 10 MG, DAILY
  8. CALCIBON D [Concomitant]
     Dosage: 1 DF, DAILY
  9. METICORTEN [Concomitant]
     Active Substance: PREDNISONE
     Dosage: 5 MG, INTERDAILY
  10. TUMS [Concomitant]
     Active Substance: CALCIUM CARBONATE
     Dosage: 2 DF, 4X/DAY (BEFORE EACH MEAL AND BEFORE GOING TO BED)
  11. ZALDIAR [Concomitant]
     Active Substance: ACETAMINOPHEN\TRAMADOL HYDROCHLORIDE
     Indication: PAIN
     Dosage: 1 DF, AS NEEDED (EVERY 8 HOURS IF THERE IS PAIN)
  12. MIOVIT [Concomitant]
     Dosage: 2 DF, 3X/DAY (WITH EACH MEAL)
  13. LASIX [Concomitant]
     Active Substance: FUROSEMIDE
     Dosage: 10 MG, 1X/DAY (IN THE MORNINGS)
  14. ALURON [Concomitant]
     Dosage: 150 MG, INTERDAILY AT LUNCH
  15. DEFLAZACORT [Concomitant]
     Active Substance: DEFLAZACORT
     Dosage: 6 MG, UNK

REACTIONS (12)
  - Arthritis bacterial [Unknown]
  - Muscle atrophy [Unknown]
  - Phrenic nerve paralysis [Unknown]
  - Tinnitus [Unknown]
  - Cholecystitis acute [Unknown]
  - Gout [Unknown]
  - Anaemia [Unknown]
  - Staphylococcal sepsis [Unknown]
  - Product use in unapproved indication [Unknown]
  - Myelodysplastic syndrome [Unknown]
  - Vertigo positional [Unknown]
  - Red blood cell sedimentation rate increased [Unknown]
